FAERS Safety Report 10344993 (Version 1)
Quarter: 2014Q3

REPORT INFORMATION
  Report Type: Spontaneous
  Country: US (occurrence: None)
  Receive Date: 20140724
  Receipt Date: 20140724
  Transmission Date: 20150326
  Serious: Yes (Death)
  Sender: FDA-Public Use
  Company Number: 2446830

PATIENT
  Sex: Female

DRUGS (1)
  1. SODIUM BICARBONATE. [Suspect]
     Active Substance: SODIUM BICARBONATE
     Indication: CARDIO-RESPIRATORY ARREST
     Dosage: UNKNOWN, INTO FEMORAL LINE, UNKNOWN, OTHER
     Dates: start: 20140709

REACTIONS (1)
  - Syringe issue [None]

NARRATIVE: CASE EVENT DATE: 201407
